FAERS Safety Report 25039548 (Version 4)
Quarter: 2025Q3

REPORT INFORMATION
  Report Type: Spontaneous
  Country: US (occurrence: US)
  Receive Date: 20250305
  Receipt Date: 20250803
  Transmission Date: 20251021
  Serious: Yes (Other)
  Sender: ALEXION PHARMACEUTICALS
  Company Number: US-AstraZeneca-CH-00819293AP

PATIENT
  Sex: Female
  Weight: 68.027 kg

DRUGS (3)
  1. SYMBICORT [Suspect]
     Active Substance: BUDESONIDE\FORMOTEROL FUMARATE DIHYDRATE
     Indication: Lung disorder
  2. PREDNISOLONE [Concomitant]
     Active Substance: PREDNISOLONE
     Route: 065
  3. ALBUTEROL [Concomitant]
     Active Substance: ALBUTEROL
     Route: 065

REACTIONS (8)
  - Macular degeneration [Unknown]
  - Fuchs^ syndrome [Unknown]
  - Device use issue [Unknown]
  - Device delivery system issue [Unknown]
  - Device dispensing error [Unknown]
  - Product prescribing error [Unknown]
  - Product dose omission issue [Unknown]
  - Wrong technique in device usage process [Unknown]
